FAERS Safety Report 5069800-1 (Version None)
Quarter: 2006Q3

REPORT INFORMATION
  Report Type: 
  Country: None (occurrence: None)
  Receive Date: 20060731
  Receipt Date: 20060717
  Transmission Date: 20061208
  Serious: No
  Sender: FDA-Public Use
  Company Number: 060718-0000679

PATIENT
  Age: 20 Year
  Sex: Female

DRUGS (5)
  1. COSMEGEN [Suspect]
     Indication: CHORIOCARCINOMA
  2. METHOTREXATE [Suspect]
     Indication: CHORIOCARCINOMA
  3. ETOPOSIDE [Suspect]
     Indication: CHORIOCARCINOMA
  4. CYCLOPHOSPHAMIDE [Suspect]
     Indication: CHORIOCARCINOMA
  5. VINCRISTINE [Suspect]
     Indication: CHORIOCARCINOMA

REACTIONS (4)
  - DISSEMINATED INTRAVASCULAR COAGULATION [None]
  - PNEUMONIA [None]
  - PULMONARY HAEMORRHAGE [None]
  - RESPIRATORY FAILURE [None]
